FAERS Safety Report 13343677 (Version 1)
Quarter: 2017Q1

REPORT INFORMATION
  Report Type: Spontaneous
  Country: DE (occurrence: DE)
  Receive Date: 20170316
  Receipt Date: 20170316
  Transmission Date: 20170428
  Serious: Yes (Death, Other)
  Sender: FDA-Public Use
  Company Number: PHHY2017DE039078

PATIENT
  Age: 69 Year
  Sex: Female

DRUGS (1)
  1. DICLOFENAC SODIUM. [Suspect]
     Active Substance: DICLOFENAC SODIUM
     Indication: PRODUCT USED FOR UNKNOWN INDICATION
     Dosage: UNK
     Route: 030

REACTIONS (11)
  - Anaphylactic shock [Fatal]
  - Intravascular haemolysis [Fatal]
  - Haemorrhage [Unknown]
  - Disseminated intravascular coagulation [Fatal]
  - Anaphylactic reaction [Unknown]
  - Circulatory collapse [Fatal]
  - Shock [Unknown]
  - Shock haemorrhagic [Fatal]
  - Haemolysis [Unknown]
  - Coagulopathy [Unknown]
  - Respiratory disorder [Unknown]
